FAERS Safety Report 5655822-6 (Version None)
Quarter: 2008Q1

REPORT INFORMATION
  Report Type: 
  Country: None (occurrence: None)
  Receive Date: 20080307
  Receipt Date: 20080221
  Transmission Date: 20080703
  Serious: Yes (Other)
  Sender: FDA-Public Use
  Company Number: DE-PFIZER INC-2008010941

PATIENT
  Sex: Male
  Weight: 83 kg

DRUGS (4)
  1. LYRICA [Suspect]
     Indication: ANXIETY
     Route: 048
     Dates: start: 20070501, end: 20080130
  2. METOPROLOL TARTRATE [Suspect]
     Dosage: DAILY DOSE:180MG
     Route: 048
  3. MIRTAZAPINE [Suspect]
     Dosage: DAILY DOSE:15MG
     Route: 048
  4. BENZODIAZEPINE DERIVATIVES [Concomitant]

REACTIONS (1)
  - ARRHYTHMIA [None]
